FAERS Safety Report 7919811-0 (Version None)
Quarter: 2011Q4

REPORT INFORMATION
  Report Type: 
  Country: None (occurrence: None)
  Receive Date: 20111117
  Receipt Date: 20111117
  Transmission Date: 20120403
  Serious: Yes (Life-Threatening, Hospitalization, Disabling)
  Sender: FDA-Public Use
  Company Number: None

PATIENT
  Age: 3 Year
  Sex: Female
  Weight: 14.5 kg

DRUGS (1)
  1. LAMOTRIGINE [Suspect]
     Indication: PETIT MAL EPILEPSY
     Dosage: 12.5MG-37.5MG DAILY
     Route: 048

REACTIONS (18)
  - EYE IRRITATION [None]
  - VOMITING [None]
  - CONJUNCTIVAL HYPERAEMIA [None]
  - PYREXIA [None]
  - LIP BLISTER [None]
  - RASH MACULO-PAPULAR [None]
  - ERYTHEMA [None]
  - OEDEMA PERIPHERAL [None]
  - PAIN [None]
  - CRYING [None]
  - STEVENS-JOHNSON SYNDROME [None]
  - EYE DISCHARGE [None]
  - LIP DISORDER [None]
  - EYELID OEDEMA [None]
  - GINGIVAL DISORDER [None]
  - CONVULSION [None]
  - GINGIVAL BLEEDING [None]
  - ASTHENIA [None]
